FAERS Safety Report 7513900-0 (Version None)
Quarter: 2011Q2

REPORT INFORMATION
  Report Type: 
  Country: None (occurrence: None)
  Receive Date: 20110531
  Receipt Date: 20110520
  Transmission Date: 20111010
  Serious: Yes (Other)
  Sender: FDA-Public Use
  Company Number: PHHY2011IT37259

PATIENT
  Sex: Male

DRUGS (9)
  1. METOPROLOL TARTRATE [Concomitant]
     Dosage: 75 MG, UNK
     Route: 048
  2. KARVEA [Concomitant]
     Dosage: 150 MG, UNK
     Route: 048
  3. DEXAMETHASONE SODIUM PHOSPHATE [Concomitant]
     Route: 048
  4. TEGRETOL [Concomitant]
     Dosage: 200 MG, UNK
     Route: 048
  5. DEPALGOS [Concomitant]
     Dosage: 1 DF, UNK
  6. CO-EFFERALGAN [Concomitant]
     Dosage: 1 DF, UNK
     Route: 048
  7. ZOMETA [Suspect]
     Indication: METASTASES TO BONE
     Dosage: 4 MG, QMO
     Route: 042
     Dates: start: 20100217, end: 20110218
  8. ASPIRIN [Concomitant]
     Dosage: 100 MG, UNK
     Route: 048
  9. ESTRACYT [Concomitant]
     Dosage: 140 MG, UNK
     Route: 048

REACTIONS (1)
  - OSTEONECROSIS [None]
